FAERS Safety Report 8607554-X (Version None)
Quarter: 2012Q3

REPORT INFORMATION
  Report Type: 
  Country: None (occurrence: None)
  Receive Date: 20120821
  Receipt Date: 20120809
  Transmission Date: 20120928
  Serious: Yes (Hospitalization)
  Sender: FDA-Public Use
  Company Number: US-BAYER-2010-003078

PATIENT
  Age: 22 Year
  Sex: Female
  Weight: 88.435 kg

DRUGS (3)
  1. PERCOCET [Concomitant]
  2. YAZ [Suspect]
     Indication: PRODUCT USED FOR UNKNOWN INDICATION
     Dosage: UNK
     Dates: start: 20100818, end: 20101001
  3. YAZ [Suspect]

REACTIONS (1)
  - PULMONARY EMBOLISM [None]
